FAERS Safety Report 7629152-7 (Version None)
Quarter: 2011Q3

REPORT INFORMATION
  Report Type: 
  Country: None (occurrence: None)
  Receive Date: 20110722
  Receipt Date: 20110708
  Transmission Date: 20111222
  Serious: Yes (Hospitalization)
  Sender: FDA-Public Use
  Company Number: PHHY2011DE63666

PATIENT
  Age: 36 Year
  Sex: Female

DRUGS (4)
  1. CLOZAPINE [Suspect]
  2. FLUANXOL [Concomitant]
  3. RISPERDAL [Concomitant]
  4. OLANZAPINE [Concomitant]

REACTIONS (4)
  - APRAXIA [None]
  - DYSPHEMIA [None]
  - DYSKINESIA [None]
  - SPEECH DISORDER [None]
